FAERS Safety Report 5420543-1 (Version None)
Quarter: 2007Q3

REPORT INFORMATION
  Report Type: 
  Country: None (occurrence: None)
  Receive Date: 20070821
  Receipt Date: 20070103
  Transmission Date: 20080115
  Serious: No
  Sender: FDA-Public Use
  Company Number: US-KINGPHARMUSA00001-K200700005

PATIENT

DRUGS (6)
  1. CYTOMEL [Suspect]
     Indication: HYPOTHYROIDISM
     Dosage: 25 MG, QD
     Route: 048
  2. CARDIZEM [Concomitant]
     Indication: HEART RATE INCREASED
     Dosage: 30 MG, QD
     Route: 048
     Dates: start: 19980101
  3. CYTOTEC [Concomitant]
     Indication: STOMACH DISCOMFORT
     Dosage: 200 MG, QID
     Route: 048
     Dates: start: 19980101
  4. PREDNISONE [Concomitant]
     Indication: LEUKOCYTOCLASTIC VASCULITIS
     Dosage: 5 MG, QOD
     Route: 048
  5. CLARITIN   /00917501/ [Concomitant]
     Indication: HYPERSENSITIVITY
     Dosage: UNK, PRN
     Route: 048
  6. CYPROHEPTADINE HCL [Concomitant]
     Indication: ANTIALLERGIC THERAPY
     Dosage: 4 MG, QD
     Route: 048

REACTIONS (1)
  - URTICARIA [None]
